FAERS Safety Report 7441827-1 (Version None)
Quarter: 2011Q2

REPORT INFORMATION
  Report Type: 
  Country: None (occurrence: None)
  Receive Date: 20110428
  Receipt Date: 20110404
  Transmission Date: 20111010
  Serious: Yes (Hospitalization, Other)
  Sender: FDA-Public Use
  Company Number: FR-PFIZER INC-1343-13290

PATIENT
  Sex: Female
  Weight: 2.2 kg

DRUGS (9)
  1. STAVUDINE [Suspect]
  2. LAMIVUDINE + ZIDOVUDINE [Suspect]
     Indication: HIV INFECTION
     Route: 064
  3. NEVIRAPINE [Suspect]
     Indication: INFECTION PROPHYLAXIS
     Route: 048
  4. STAVUDINE [Suspect]
     Indication: HIV INFECTION
     Route: 064
     Dates: end: 20000908
  5. VIRACEPT [Suspect]
     Indication: HIV INFECTION
     Route: 064
  6. EFAVIRENZ [Suspect]
     Indication: HIV INFECTION
     Route: 064
     Dates: end: 20000908
  7. STAVUDINE [Suspect]
     Route: 048
     Dates: start: 20000908
  8. STAVUDINE [Suspect]
     Indication: INFECTION PROPHYLAXIS
  9. DIDANOSINE [Suspect]
     Indication: HIV INFECTION
     Route: 064
     Dates: end: 20000908

REACTIONS (12)
  - ECZEMA [None]
  - CEREBROVASCULAR DISORDER [None]
  - CONGENITAL ANOMALY [None]
  - HAEMANGIOMA OF SKIN [None]
  - HYPERTRIGLYCERIDAEMIA [None]
  - GASTROOESOPHAGEAL REFLUX DISEASE [None]
  - DEVELOPMENTAL DELAY [None]
  - BRONCHITIS [None]
  - LYMPHOPENIA [None]
  - NEUTROPENIA [None]
  - PLATELET COUNT INCREASED [None]
  - SLEEP DISORDER [None]
